FAERS Safety Report 7801279-6 (Version None)
Quarter: 2011Q4

REPORT INFORMATION
  Report Type: 
  Country: None (occurrence: None)
  Receive Date: 20111007
  Receipt Date: 20110930
  Transmission Date: 20120403
  Serious: No
  Sender: FDA-Public Use
  Company Number: US-BIOGENIDEC-2011BI037596

PATIENT
  Age: 38 Year
  Sex: Male

DRUGS (2)
  1. AVONEX [Suspect]
     Indication: MULTIPLE SCLEROSIS
     Route: 030
     Dates: start: 20110924
  2. MOTRIN [Concomitant]
     Indication: PREMEDICATION

REACTIONS (4)
  - PYREXIA [None]
  - CHILLS [None]
  - COLD SWEAT [None]
  - ARTHRALGIA [None]
